FAERS Safety Report 7739635-7 (Version None)
Quarter: 2011Q3

REPORT INFORMATION
  Report Type: 
  Country: None (occurrence: None)
  Receive Date: 20110909
  Receipt Date: 20110905
  Transmission Date: 20111222
  Serious: Yes (Hospitalization)
  Sender: FDA-Public Use
  Company Number: JP-BAYER-200912705BYL

PATIENT
  Age: 77 Year
  Sex: Male
  Weight: 51 kg

DRUGS (3)
  1. GLYCYRRHIZIC ACID [Concomitant]
     Route: 042
  2. NEXAVAR [Suspect]
     Indication: HEPATIC NEOPLASM MALIGNANT
     Route: 048
     Dates: start: 20090713, end: 20090727
  3. ANTIPSYCHOTICS [Concomitant]
     Route: 065

REACTIONS (2)
  - PYREXIA [None]
  - RHABDOMYOLYSIS [None]
